FAERS Safety Report 6195412-2 (Version None)
Quarter: 2009Q2

REPORT INFORMATION
  Report Type: 
  Country: None (occurrence: None)
  Receive Date: 20090515
  Receipt Date: 20090504
  Transmission Date: 20091009
  Serious: Yes (Death, Hospitalization)
  Sender: FDA-Public Use
  Company Number: 2009AL002831

PATIENT
  Age: 64 Year
  Sex: Female

DRUGS (17)
  1. DIGOXIN [Suspect]
     Indication: CARDIAC DISORDER
     Dosage: 0.25MG, DAILY, PO
     Route: 048
  2. ULTRAM [Concomitant]
  3. PROPOXYPHENE HCL CAP [Concomitant]
  4. OXYCONTIN [Concomitant]
  5. OXYCODONE HCL [Concomitant]
  6. BUTALBITAL [Concomitant]
  7. ACETAMINOPHEN [Concomitant]
  8. NEURONTIN [Concomitant]
  9. DIAZEPAM [Concomitant]
  10. PREMARIN [Concomitant]
  11. MEDROXYPROGESTERONE [Concomitant]
  12. LIPITOR [Concomitant]
  13. PRAVASTATIN [Concomitant]
  14. FUROSEMIDE [Concomitant]
  15. TOPROL-XL [Concomitant]
  16. LISINOPRIL [Concomitant]
  17. CINETIDINE [Concomitant]

REACTIONS (6)
  - ANXIETY [None]
  - CARDIAC ARREST [None]
  - CARDIAC DEATH [None]
  - EMOTIONAL DISORDER [None]
  - ENCEPHALOPATHY [None]
  - INJURY [None]
